FAERS Safety Report 12624375 (Version 1)
Quarter: 2016Q3

REPORT INFORMATION
  Report Type: Report from Study
  Country: US (occurrence: US)
  Receive Date: 20160805
  Receipt Date: 20160805
  Transmission Date: 20161109
  Serious: Yes (Hospitalization, Other)
  Sender: FDA-Public Use
  Company Number: US-ROCHE-779466

PATIENT
  Age: 52 Year
  Sex: Male
  Weight: 70.9 kg

DRUGS (3)
  1. VISMODEGIB [Suspect]
     Active Substance: VISMODEGIB
     Route: 048
  2. VISMODEGIB [Suspect]
     Active Substance: VISMODEGIB
     Route: 048
  3. VISMODEGIB [Suspect]
     Active Substance: VISMODEGIB
     Indication: GLIOBLASTOMA MULTIFORME
     Dosage: LAST DOSE PRIOR TO WOUND DEHISCENCE:08/APR/2011, TOTAL DOSE1500 MG,150 MG QD X7DAYS,PRIOR TO SURGERG
     Route: 048
     Dates: start: 20110111, end: 20110427

REACTIONS (5)
  - Abdominal infection [Unknown]
  - Wound dehiscence [Recovering/Resolving]
  - Headache [Unknown]
  - Pain [Unknown]
  - Abdominal pain [Unknown]

NARRATIVE: CASE EVENT DATE: 20110203
